FAERS Safety Report 20343784 (Version 1)
Quarter: 2022Q1

REPORT INFORMATION
  Report Type: Report from Study
  Country: US (occurrence: US)
  Receive Date: 20220118
  Receipt Date: 20220118
  Transmission Date: 20220423
  Serious: Yes (Hospitalization)
  Sender: FDA-Public Use
  Company Number: US-ABBVIE-22K-163-4235422-00

PATIENT
  Age: 42 Year
  Sex: Female

DRUGS (1)
  1. ORILISSA [Suspect]
     Active Substance: ELAGOLIX SODIUM
     Indication: Endometriosis
     Route: 048
     Dates: start: 202110, end: 202111

REACTIONS (5)
  - Myocardial infarction [Unknown]
  - Night sweats [Unknown]
  - Anxiety [Unknown]
  - Blood pressure increased [Unknown]
  - Hot flush [Unknown]

NARRATIVE: CASE EVENT DATE: 20211001
